FAERS Safety Report 16528918 (Version 1)
Quarter: 2019Q3

REPORT INFORMATION
  Report Type: Spontaneous
  Country: HK (occurrence: HK)
  Receive Date: 20190703
  Receipt Date: 20190703
  Transmission Date: 20191004
  Serious: Yes (Hospitalization)
  Sender: FDA-Public Use
  Company Number: PHHY2019HK149084

PATIENT
  Age: 78 Year
  Sex: Female

DRUGS (4)
  1. AMOXICILLIN/CLAVULANIC ACID [Suspect]
     Active Substance: AMOXICILLIN\CLAVULANIC ACID
     Indication: ANTIBIOTIC THERAPY
     Route: 042
  2. CLARITHROMYCIN. [Suspect]
     Active Substance: CLARITHROMYCIN
     Indication: ANTIBIOTIC THERAPY
     Route: 048
  3. CEFUROXIME. [Suspect]
     Active Substance: CEFUROXIME
     Indication: PYREXIA
     Dosage: UNK
     Route: 048
  4. CEFEPIME [Suspect]
     Active Substance: CEFEPIME HYDROCHLORIDE
     Indication: ANTIBIOTIC THERAPY
     Dosage: ON DAY10
     Route: 042

REACTIONS (7)
  - Hypoxia [Recovering/Resolving]
  - Pulmonary cavitation [Recovering/Resolving]
  - Dyspnoea [Recovering/Resolving]
  - Pneumonia pneumococcal [Recovering/Resolving]
  - Pneumonia necrotising [Recovering/Resolving]
  - Lung consolidation [Recovering/Resolving]
  - Chest X-ray abnormal [Recovering/Resolving]
